FAERS Safety Report 13675649 (Version 3)
Quarter: 2017Q3

REPORT INFORMATION
  Report Type: Report from Study
  Country: US (occurrence: US)
  Receive Date: 20170621
  Receipt Date: 20170714
  Transmission Date: 20171127
  Serious: Yes (Hospitalization, Other)
  Sender: FDA-Public Use
  Company Number: US-EXELIXIS-CABO-17009499

PATIENT
  Sex: Female

DRUGS (17)
  1. JANUVIA [Concomitant]
     Active Substance: SITAGLIPTIN PHOSPHATE
  2. DULERA [Concomitant]
     Active Substance: FORMOTEROL FUMARATE DIHYDRATE\MOMETASONE FUROATE
  3. HYDROCHLOROTHIAZIDE. [Concomitant]
     Active Substance: HYDROCHLOROTHIAZIDE
  4. SINGULAIR [Concomitant]
     Active Substance: MONTELUKAST SODIUM
  5. MUPIROCIN. [Concomitant]
     Active Substance: MUPIROCIN
  6. AZELASTINE [Concomitant]
     Active Substance: AZELASTINE
  7. COMETRIQ [Suspect]
     Active Substance: CABOZANTINIB S-MALATE
     Indication: THYROID CANCER
     Dosage: 60 MG, QD
     Route: 048
     Dates: start: 20170313, end: 2017
  8. CAPRELSA [Concomitant]
     Active Substance: VANDETANIB
  9. VITAMIN D3 [Concomitant]
     Active Substance: CHOLECALCIFEROL
  10. FLONASE [Concomitant]
     Active Substance: FLUTICASONE PROPIONATE
  11. SYNTHROID [Concomitant]
     Active Substance: LEVOTHYROXINE SODIUM
  12. CALCIUM CARBONATE. [Concomitant]
     Active Substance: CALCIUM CARBONATE
  13. EDARBI [Concomitant]
     Active Substance: AZILSARTAN KAMEDOXOMIL
  14. ALDACTONE [Concomitant]
     Active Substance: SPIRONOLACTONE
  15. CELEXA [Concomitant]
     Active Substance: CITALOPRAM HYDROBROMIDE
  16. CRESTOR [Concomitant]
     Active Substance: ROSUVASTATIN CALCIUM
  17. PRILOSEC [Concomitant]
     Active Substance: OMEPRAZOLE MAGNESIUM

REACTIONS (4)
  - Drug ineffective [Unknown]
  - Renal failure [Unknown]
  - Pleural effusion [Recovering/Resolving]
  - Pneumonia [Recovering/Resolving]
